FAERS Safety Report 18681641 (Version 1)
Quarter: 2020Q4

REPORT INFORMATION
  Report Type: Spontaneous
  Country: DE (occurrence: DE)
  Receive Date: 20201229
  Receipt Date: 20201229
  Transmission Date: 20210114
  Serious: Yes (Hospitalization, Other)
  Sender: FDA-Public Use
  Company Number: DE-TAKEDA-2020TEU012107

PATIENT
  Age: 15 Year
  Sex: Male

DRUGS (3)
  1. FENTANYL. [Suspect]
     Active Substance: FENTANYL
     Indication: ANALGESIC THERAPY
     Dosage: UNK
     Route: 065
  2. BACLOFEN. [Suspect]
     Active Substance: BACLOFEN
     Indication: INTENTIONAL PRODUCT MISUSE
     Dosage: 2250 MILLIGRAM
     Route: 048
  3. BACLOFEN. [Suspect]
     Active Substance: BACLOFEN
     Dosage: 2250 MILLIGRAM
     Route: 048

REACTIONS (23)
  - Overdose [Unknown]
  - Generalised tonic-clonic seizure [Recovered/Resolved]
  - Vomiting [Recovered/Resolved]
  - Respiratory depression [Recovered/Resolved]
  - Nausea [Unknown]
  - Intentional overdose [Recovered/Resolved]
  - Hypotonia [Recovered/Resolved]
  - Coma [Recovered/Resolved]
  - Rhabdomyolysis [Recovering/Resolving]
  - Bradypnoea [Unknown]
  - Status epilepticus [Recovered/Resolved]
  - Conjunctival hyperaemia [Recovering/Resolving]
  - Hyperreflexia [Recovered/Resolved]
  - Toxicity to various agents [Recovered/Resolved]
  - Intentional product misuse [Recovered/Resolved]
  - Drug abuse [Unknown]
  - Drug interaction [Unknown]
  - Heart rate decreased [Recovered/Resolved]
  - Sinus bradycardia [Recovered/Resolved]
  - Aggression [Unknown]
  - Cyanosis [Unknown]
  - Lagophthalmos [Recovering/Resolving]
  - Drug level increased [Recovering/Resolving]
